FAERS Safety Report 13933969 (Version 4)
Quarter: 2018Q1

REPORT INFORMATION
  Report Type: Spontaneous
  Country: US (occurrence: US)
  Receive Date: 20170904
  Receipt Date: 20180130
  Transmission Date: 20180508
  Serious: No
  Sender: FDA-Public Use
  Company Number: US-BIOGEN-2017BI00452242

PATIENT
  Sex: Female

DRUGS (3)
  1. VENIFER [Concomitant]
     Indication: PRODUCT USED FOR UNKNOWN INDICATION
     Route: 065
  2. PLEGRIDY [Suspect]
     Active Substance: PEGINTERFERON BETA-1A
     Indication: MULTIPLE SCLEROSIS
     Route: 058
     Dates: start: 20150320, end: 20151117
  3. PLEGRIDY [Suspect]
     Active Substance: PEGINTERFERON BETA-1A
     Route: 058
     Dates: start: 20150115, end: 20151116

REACTIONS (14)
  - Vertigo [Unknown]
  - Fatigue [Unknown]
  - Visual impairment [Not Recovered/Not Resolved]
  - Motor dysfunction [Unknown]
  - Temporomandibular joint syndrome [Not Recovered/Not Resolved]
  - Rash [Unknown]
  - Influenza [Recovered/Resolved]
  - Decreased activity [Unknown]
  - Neck pain [Unknown]
  - Pain in extremity [Unknown]
  - Drug interaction [Unknown]
  - Mobility decreased [Unknown]
  - Teeth brittle [Not Recovered/Not Resolved]
  - Surgery [Recovered/Resolved]
